FAERS Safety Report 17066906 (Version 1)
Quarter: 2019Q4

REPORT INFORMATION
  Report Type: Report from Study
  Country: ES (occurrence: ES)
  Receive Date: 20191122
  Receipt Date: 20191122
  Transmission Date: 20200122
  Serious: Yes (Hospitalization)
  Sender: FDA-Public Use
  Company Number: ES-ASTRAZENECA-2019SF62413

PATIENT
  Sex: Female

DRUGS (6)
  1. OLANZAPINA (2770A) [Concomitant]
     Active Substance: OLANZAPINE
     Indication: BIPOLAR DISORDER
     Route: 048
     Dates: start: 201907, end: 20190811
  2. SINOGAN [Interacting]
     Active Substance: LEVOMEPROMAZINE
     Indication: PSYCHOMOTOR HYPERACTIVITY
     Route: 042
     Dates: start: 20190812, end: 20190812
  3. QUETIAPINA (1136A) [Suspect]
     Active Substance: QUETIAPINE
     Indication: BIPOLAR DISORDER
     Route: 048
     Dates: start: 201907, end: 20190811
  4. OLANZAPINA (2770A) [Interacting]
     Active Substance: OLANZAPINE
     Indication: PSYCHOMOTOR HYPERACTIVITY
     Route: 030
     Dates: start: 20190812, end: 20190812
  5. DEPAKINE CRONO 500 MG COMPRIMIDOS DE LIBERACION PROLONGADA , 100 CO... [Concomitant]
     Indication: BIPOLAR DISORDER
     Route: 048
     Dates: start: 201907, end: 20190811
  6. RIVOTRIL [Concomitant]
     Active Substance: CLONAZEPAM
     Indication: BIPOLAR DISORDER
     Route: 048
     Dates: start: 201907, end: 20190811

REACTIONS (1)
  - Neuroleptic malignant syndrome [Recovered/Resolved]

NARRATIVE: CASE EVENT DATE: 20190812
